FAERS Safety Report 6839528-3 (Version None)
Quarter: 2010Q3

REPORT INFORMATION
  Report Type: 
  Country: None (occurrence: None)
  Receive Date: 20100714
  Receipt Date: 20091204
  Transmission Date: 20110219
  Serious: No
  Sender: FDA-Public Use
  Company Number: A0833176A

PATIENT
  Age: 65 Year
  Sex: Female

DRUGS (3)
  1. FLOVENT [Suspect]
     Indication: ASTHMA
     Dosage: 1PUFF TWICE PER DAY
     Route: 055
     Dates: start: 20091030
  2. BENADRYL [Concomitant]
  3. ASPIRIN [Concomitant]

REACTIONS (1)
  - RASH [None]
